FAERS Safety Report 10410582 (Version 2)
Quarter: 2014Q3

REPORT INFORMATION
  Report Type: Spontaneous
  Country: US (occurrence: US)
  Receive Date: 20140826
  Receipt Date: 20140826
  Transmission Date: 20150326
  Serious: No
  Sender: FDA-Public Use
  Company Number: US-BRISTOL-MYERS SQUIBB COMPANY-20438420

PATIENT
  Age: 53 Year
  Sex: Female
  Weight: 61.22 kg

DRUGS (2)
  1. LUNESTA [Concomitant]
     Active Substance: ESZOPICLONE
  2. KENALOG-40 [Suspect]
     Active Substance: TRIAMCINOLONE ACETONIDE
     Dates: start: 20120822

REACTIONS (9)
  - Photosensitivity reaction [Unknown]
  - Peripheral swelling [Recovering/Resolving]
  - Gait disturbance [Unknown]
  - Contusion [Recovering/Resolving]
  - Fatigue [Unknown]
  - Neuralgia [Not Recovered/Not Resolved]
  - Atrophy [Unknown]
  - Anxiety [Recovering/Resolving]
  - Disorientation [Unknown]

NARRATIVE: CASE EVENT DATE: 2012
